FAERS Safety Report 18505080 (Version 16)
Quarter: 2022Q1

REPORT INFORMATION
  Report Type: Spontaneous
  Country: CA (occurrence: CA)
  Receive Date: 20201116
  Receipt Date: 20220116
  Transmission Date: 20220423
  Serious: Yes (Other)
  Sender: FDA-Public Use
  Company Number: CA-CELLTRION INC.-2020CA027580

PATIENT

DRUGS (23)
  1. INFLECTRA [Suspect]
     Active Substance: INFLIXIMAB-DYYB
     Indication: Crohn^s disease
     Dosage: 500 MG, AT 0, 2, 6 WEEKS, THEN EVERY 8 WEEKS
     Route: 042
     Dates: start: 20200525, end: 20201221
  2. INFLECTRA [Suspect]
     Active Substance: INFLIXIMAB-DYYB
     Dosage: 500 MG, AT 0, 2, 6 WEEKS, THEN EVERY 8 WEEKS
     Route: 042
     Dates: start: 20200708
  3. INFLECTRA [Suspect]
     Active Substance: INFLIXIMAB-DYYB
     Dosage: 500 MG, AT 0, 2, 6 WEEKS, THEN EVERY 8 WEEKS
     Route: 042
     Dates: start: 20200708
  4. INFLECTRA [Suspect]
     Active Substance: INFLIXIMAB-DYYB
     Dosage: 500 MG, AT 0, 2, 6 WEEKS, THEN EVERY 8 WEEKS
     Route: 042
     Dates: start: 20200831
  5. INFLECTRA [Suspect]
     Active Substance: INFLIXIMAB-DYYB
     Dosage: 500 MG, AT 0, 2, 6 WEEKS, THEN EVERY 8 WEEKS
     Route: 042
     Dates: start: 20201026
  6. INFLECTRA [Suspect]
     Active Substance: INFLIXIMAB-DYYB
     Dosage: 500 MG, AT 0, 2, 6 WEEKS, THEN EVERY 8 WEEKS
     Route: 042
     Dates: start: 20201026
  7. INFLECTRA [Suspect]
     Active Substance: INFLIXIMAB-DYYB
     Dosage: 500 MG (RE-LOAD), AT 0, 2, 6 WEEKS, THEN EVERY 4 WEEKS
     Route: 042
     Dates: start: 20201221
  8. INFLECTRA [Suspect]
     Active Substance: INFLIXIMAB-DYYB
     Dosage: 500 MG AT 0, 2, 6 WEEKS, THEN EVERY 4 WEEKS
     Route: 042
     Dates: start: 20210107
  9. INFLECTRA [Suspect]
     Active Substance: INFLIXIMAB-DYYB
     Dosage: 500 MG AT 0, 2, 6 WEEKS, THEN EVERY 4 WEEKS
     Route: 042
     Dates: start: 20210107
  10. INFLECTRA [Suspect]
     Active Substance: INFLIXIMAB-DYYB
     Dosage: 500 MG AT 0, 2, 6 WEEKS, THEN EVERY 4 WEEKS
     Route: 042
     Dates: start: 20210202
  11. INFLECTRA [Suspect]
     Active Substance: INFLIXIMAB-DYYB
     Dosage: 500 MG AT 0, 2, 6 WEEKS, THEN EVERY 4 WEEKS
     Route: 042
     Dates: start: 20210202
  12. INFLECTRA [Suspect]
     Active Substance: INFLIXIMAB-DYYB
     Dosage: 500 MG AT 0, 2, 6 WEEKS, THEN EVERY 4 WEEKS
     Route: 042
     Dates: start: 20210202
  13. INFLECTRA [Suspect]
     Active Substance: INFLIXIMAB-DYYB
     Dosage: 500 MG AT 0, 2, 6 WEEKS, THEN EVERY 4 WEEKS
     Route: 042
     Dates: start: 20210303
  14. INFLECTRA [Suspect]
     Active Substance: INFLIXIMAB-DYYB
     Dosage: 500 MG AT 0, 2, 6 WEEKS, THEN EVERY 4 WEEKS
     Route: 042
     Dates: start: 20210331
  15. INFLECTRA [Suspect]
     Active Substance: INFLIXIMAB-DYYB
     Dosage: 500 MG AT 0, 2, 6 WEEKS, THEN EVERY 4 WEEKSS
     Route: 042
     Dates: start: 20210428
  16. INFLECTRA [Suspect]
     Active Substance: INFLIXIMAB-DYYB
     Dosage: 500 MG AT 0, 2, 6 WEEKS, THEN EVERY 4 WEEKS
     Route: 042
     Dates: start: 20210621
  17. INFLECTRA [Suspect]
     Active Substance: INFLIXIMAB-DYYB
     Dosage: 500 MG AT 0, 2, 6 WEEKS, THEN EVERY 4 WEEKS
     Route: 042
     Dates: start: 20210721
  18. INFLECTRA [Suspect]
     Active Substance: INFLIXIMAB-DYYB
     Dosage: 500 MG AT 0, 2, 6 WEEKS, THEN EVERY 4 WEEKS
     Route: 042
     Dates: start: 20210818
  19. INFLECTRA [Suspect]
     Active Substance: INFLIXIMAB-DYYB
     Dosage: 500 MG AT 0, 2, 6 WEEKS, THEN EVERY 4 WEEKS
     Route: 042
     Dates: start: 20210915
  20. INFLECTRA [Suspect]
     Active Substance: INFLIXIMAB-DYYB
     Dosage: 500 MG AT 0, 2, 6 WEEKS, THEN EVERY 4 WEEKS
     Route: 042
     Dates: start: 20211013
  21. INFLECTRA [Suspect]
     Active Substance: INFLIXIMAB-DYYB
     Dosage: 500 MG AT 0, 2, 6 WEEKS, THEN EVERY 4 WEEKS
     Route: 042
     Dates: start: 20211110
  22. INFLECTRA [Suspect]
     Active Substance: INFLIXIMAB-DYYB
     Dosage: 500 MG AT 0, 2, 6 WEEKS, THEN EVERY 4 WEEKS
     Route: 042
     Dates: start: 20211208
  23. INFLECTRA [Suspect]
     Active Substance: INFLIXIMAB-DYYB
     Dosage: 500 MG AT 0, 2, 6 WEEKS, THEN EVERY 4 WEEKS
     Route: 042
     Dates: start: 20220106

REACTIONS (11)
  - Poor venous access [Unknown]
  - Weight increased [Not Recovered/Not Resolved]
  - Off label use [Unknown]
  - Intentional product use issue [Unknown]
  - Off label use [Unknown]
  - Blood pressure fluctuation [Unknown]
  - Infusion site pain [Unknown]
  - Infusion site swelling [Unknown]
  - Infusion site mass [Unknown]
  - Weight decreased [Unknown]
  - Condition aggravated [Recovering/Resolving]

NARRATIVE: CASE EVENT DATE: 20200708
